FAERS Safety Report 19290502 (Version 1)
Quarter: 2021Q2

REPORT INFORMATION
  Report Type: Spontaneous
  Country: US (occurrence: US)
  Receive Date: 20210522
  Receipt Date: 20210522
  Transmission Date: 20210717
  Serious: Yes (Hospitalization)
  Sender: FDA-Public Use
  Company Number: NVSC2021US107368

PATIENT
  Age: 16 Month
  Sex: Male

DRUGS (1)
  1. ZORTRESS [Suspect]
     Active Substance: EVEROLIMUS
     Indication: PRODUCT USED FOR UNKNOWN INDICATION
     Dosage: 0.75 MG, UNKNOWN(TAKING FROM A YEAR NOW)
     Route: 065

REACTIONS (3)
  - Feeling abnormal [Unknown]
  - Illness [Unknown]
  - Product solubility abnormal [Unknown]
